FAERS Safety Report 4677882-1 (Version None)
Quarter: 2005Q2

REPORT INFORMATION
  Report Type: 
  Country: None (occurrence: None)
  Receive Date: 20050531
  Receipt Date: 20041203
  Transmission Date: 20051028
  Serious: Yes (Other)
  Sender: FDA-Public Use
  Company Number: GB-GLAXOSMITHKLINE-B0361425A

PATIENT
  Sex: Female

DRUGS (2)
  1. PAROXETINE HYDROCHLORIDE [Suspect]
     Dosage: 20MG UNKNOWN
     Route: 065
     Dates: start: 19970101, end: 20030301
  2. FLUOXETINE [Concomitant]
     Route: 065

REACTIONS (9)
  - AGGRESSION [None]
  - AGITATION [None]
  - DEPRESSED MOOD [None]
  - DRUG WITHDRAWAL SYNDROME [None]
  - INITIAL INSOMNIA [None]
  - INTENTIONAL SELF-INJURY [None]
  - PANIC ATTACK [None]
  - SUICIDAL IDEATION [None]
  - TEARFULNESS [None]
